FAERS Safety Report 10249525 (Version 1)
Quarter: 2014Q2

REPORT INFORMATION
  Report Type: Spontaneous
  Country: US (occurrence: None)
  Receive Date: 20140619
  Receipt Date: 20140619
  Transmission Date: 20141212
  Serious: No
  Sender: FDA-Public Use
  Company Number: None

PATIENT
  Sex: Female

DRUGS (1)
  1. COPAXONE 40MG UNKNOWN [Suspect]
     Indication: MULTIPLE SCLEROSIS
     Dosage: 40MG   INJ 40MG 3 TIMES PER WK AT  SUB Q
     Route: 058
     Dates: start: 20111006, end: 20140421

REACTIONS (2)
  - Injection site irritation [None]
  - Injection site mass [None]
